FAERS Safety Report 15417663 (Version 1)
Quarter: 2018Q3

REPORT INFORMATION
  Report Type: Spontaneous
  Country: AU (occurrence: AU)
  Receive Date: 20180924
  Receipt Date: 20180924
  Transmission Date: 20181010
  Serious: Yes (Other)
  Sender: FDA-Public Use
  Company Number: AU-MYLANLABS-2018M1067637

PATIENT
  Age: 60 Year
  Sex: Male

DRUGS (2)
  1. HEPARIN [Suspect]
     Active Substance: HEPARIN SODIUM
     Indication: THROMBOSIS PROPHYLAXIS
     Dosage: 5000U INTRAOPERATIVE
     Route: 058
  2. HEPARIN [Suspect]
     Active Substance: HEPARIN SODIUM
     Dosage: 5000U EVERY 12 HOUR POSTOPERATIVE.
     Route: 058

REACTIONS (1)
  - Drug ineffective [Unknown]
